FAERS Safety Report 11905431 (Version 3)
Quarter: 2016Q2

REPORT INFORMATION
  Report Type: Spontaneous
  Country: US (occurrence: US)
  Receive Date: 20160109
  Receipt Date: 20160608
  Transmission Date: 20160815
  Serious: No
  Sender: FDA-Public Use
  Company Number: US-JNJFOC-20151202461

PATIENT
  Sex: Female
  Weight: 57.15 kg

DRUGS (1)
  1. RISPERDAL CONSTA [Suspect]
     Active Substance: RISPERIDONE
     Indication: SCHIZOPHRENIA
     Route: 030
     Dates: start: 20110324

REACTIONS (4)
  - Device malfunction [Unknown]
  - Device breakage [Unknown]
  - Schizophrenia [Recovered/Resolved]
  - Inappropriate schedule of drug administration [Unknown]
